FAERS Safety Report 6884608-X (Version None)
Quarter: 2010Q3

REPORT INFORMATION
  Report Type: 
  Country: None (occurrence: None)
  Receive Date: 20100729
  Receipt Date: 20070723
  Transmission Date: 20110219
  Serious: No
  Sender: FDA-Public Use
  Company Number: US-PFIZER INC-2007060403

PATIENT
  Sex: Female

DRUGS (2)
  1. CELEBREX [Suspect]
     Indication: NECK INJURY
     Dates: start: 20070722, end: 20070722
  2. ZANAFLEX [Concomitant]

REACTIONS (2)
  - PRURITUS [None]
  - URTICARIA [None]
